FAERS Safety Report 12057682 (Version 1)
Quarter: 2016Q1

REPORT INFORMATION
  Report Type: Spontaneous
  Country: FR (occurrence: FR)
  Receive Date: 20160209
  Receipt Date: 20160209
  Transmission Date: 20160526
  Serious: Yes (Death, Other)
  Sender: FDA-Public Use
  Company Number: FR-BAXTER-2016BAX005192

PATIENT
  Age: 61 Year
  Sex: Female

DRUGS (26)
  1. DEXAMETHASONE. [Suspect]
     Active Substance: DEXAMETHASONE
     Indication: AMYLOIDOSIS
     Dosage: D1, D2, D3, D4, D9, D10, D11 AND D12 IN CYCLES OF 21 DAYS
     Route: 048
     Dates: start: 20150904
  2. DEXAMETHASONE. [Suspect]
     Active Substance: DEXAMETHASONE
     Dosage: SECOND COURSE; D1, D2, D3, D4, D9, D10, D11 AND D12 IN CYCLES OF 21 DAYS
     Route: 048
     Dates: start: 20150925
  3. VELCADE [Suspect]
     Active Substance: BORTEZOMIB
     Dosage: SECOND COURSE; D1, D4, D8 AND D11 IN CYCLES OF 21 DAYS
     Route: 058
     Dates: start: 20150925
  4. VELCADE [Suspect]
     Active Substance: BORTEZOMIB
     Dosage: FOURTH COURSE; D1, D4, D8 AND D11 IN CYCLES OF 21 DAYS
     Route: 058
     Dates: start: 20160104
  5. SPASFON [Concomitant]
     Active Substance: PHLOROGLUCINOL
     Indication: PRODUCT USED FOR UNKNOWN INDICATION
     Route: 065
  6. BACTRIM [Concomitant]
     Active Substance: SULFAMETHOXAZOLE\TRIMETHOPRIM
     Indication: PRODUCT USED FOR UNKNOWN INDICATION
     Route: 065
  7. LEVOTHYROX [Concomitant]
     Active Substance: LEVOTHYROXINE
     Indication: PRODUCT USED FOR UNKNOWN INDICATION
     Route: 065
  8. SPECIAFOLDINE [Concomitant]
     Active Substance: FOLIC ACID
     Indication: PRODUCT USED FOR UNKNOWN INDICATION
     Route: 003
  9. ENDOXAN 50 MG, COMPRIM? ENROB? [Suspect]
     Active Substance: CYCLOPHOSPHAMIDE
     Indication: AMYLOIDOSIS
     Dosage: D1, D8 AND D15 IN CYCLES OF 21 DAYS
     Route: 048
     Dates: start: 20150904
  10. ENDOXAN 50 MG, COMPRIM? ENROB? [Suspect]
     Active Substance: CYCLOPHOSPHAMIDE
     Dosage: FOURTH COURSE; D1, D8 AND D15 IN CYCLES OF 21 DAYS
     Route: 048
     Dates: start: 20160104
  11. ENDOXAN 50 MG, COMPRIM? ENROB? [Suspect]
     Active Substance: CYCLOPHOSPHAMIDE
     Indication: OFF LABEL USE
     Dosage: SECOND COURSE; D1, D8 AND D15 IN CYCLES OF 21 DAYS
     Route: 048
     Dates: start: 20150925
  12. ARTANE [Concomitant]
     Active Substance: TRIHEXYPHENIDYL HYDROCHLORIDE
     Indication: PRODUCT USED FOR UNKNOWN INDICATION
     Route: 065
  13. ENDOXAN 50 MG, COMPRIM? ENROB? [Suspect]
     Active Substance: CYCLOPHOSPHAMIDE
     Dosage: D1, D8 AND D15 IN CYCLES OF 21 DAYS
     Route: 048
     Dates: start: 20151204
  14. ENDOXAN 50 MG, COMPRIM? ENROB? [Suspect]
     Active Substance: CYCLOPHOSPHAMIDE
     Dosage: FOURTH COURSE; D1, D8 AND D15 IN CYCLES OF 21 DAYS
     Route: 048
     Dates: start: 20160111, end: 20160111
  15. DEXAMETHASONE. [Suspect]
     Active Substance: DEXAMETHASONE
     Dosage: FOURTH COURSE; D1, D2, D3, D4, D9, D10, D11 AND D12 IN CYCLES OF 21 DAYS
     Route: 048
     Dates: start: 20160104
  16. VELCADE [Suspect]
     Active Substance: BORTEZOMIB
     Dosage: D1, D4, D8 AND D11 IN CYCLES OF 21 DAYS
     Route: 058
     Dates: start: 20151204
  17. SMECTA [Concomitant]
     Active Substance: MONTMORILLONITE
     Indication: PRODUCT USED FOR UNKNOWN INDICATION
     Route: 065
  18. INEXIUM [Concomitant]
     Active Substance: ESOMEPRAZOLE
     Indication: PRODUCT USED FOR UNKNOWN INDICATION
     Route: 065
  19. KARDEGIC [Concomitant]
     Active Substance: ASPIRIN LYSINE
     Indication: PRODUCT USED FOR UNKNOWN INDICATION
     Route: 065
  20. VELCADE [Suspect]
     Active Substance: BORTEZOMIB
     Indication: AMYLOIDOSIS
     Dosage: D1, D4, D8 AND D11 IN CYCLES OF 21 DAYS
     Route: 058
     Dates: start: 20150904
  21. VELCADE [Suspect]
     Active Substance: BORTEZOMIB
     Dosage: FOURTH COURSE; D1, D4, D8 AND D11 IN CYCLES OF 21 DAYS
     Route: 058
     Dates: start: 20160111, end: 20160111
  22. DEXAMETHASONE. [Suspect]
     Active Substance: DEXAMETHASONE
     Dosage: D1, D2, D3, D4, D9, D10, D11 AND D12 IN CYCLES OF 21 DAYS
     Route: 048
     Dates: start: 20151204
  23. GAVISCON [Concomitant]
     Active Substance: ALUMINUM HYDROXIDE\MAGNESIUM CARBONATE
     Indication: PRODUCT USED FOR UNKNOWN INDICATION
     Route: 065
  24. DEXAMETHASONE. [Suspect]
     Active Substance: DEXAMETHASONE
     Dosage: FOURTH COURSE; D1, D2, D3, D4, D9, D10, D11 AND D12 IN CYCLES OF 21 DAYS
     Route: 048
     Dates: start: 20160112, end: 20160112
  25. PARACETAMOL [Concomitant]
     Active Substance: ACETAMINOPHEN
     Indication: PRODUCT USED FOR UNKNOWN INDICATION
     Route: 065
  26. HYDROCORTISONE. [Concomitant]
     Active Substance: HYDROCORTISONE
     Indication: PRODUCT USED FOR UNKNOWN INDICATION
     Route: 065

REACTIONS (9)
  - Thrombocytopenia [Unknown]
  - Diverticular perforation [Fatal]
  - Peritonitis [Fatal]
  - Acute respiratory distress syndrome [Unknown]
  - Gastrointestinal stoma necrosis [Unknown]
  - Septic shock [Recovered/Resolved]
  - Escherichia sepsis [Recovered/Resolved]
  - Diverticulitis [Fatal]
  - Septic shock [Fatal]

NARRATIVE: CASE EVENT DATE: 20151220
